FAERS Safety Report 15084415 (Version 11)
Quarter: 2019Q4

REPORT INFORMATION
  Report Type: Report from Study
  Country: DE (occurrence: DE)
  Receive Date: 20180628
  Receipt Date: 20191118
  Transmission Date: 20200122
  Serious: Yes (Death, Hospitalization, Other)
  Sender: FDA-Public Use
  Company Number: DE-BRISTOL-MYERS SQUIBB COMPANY-BMS-2017-104279

PATIENT
  Age: 58 Year
  Sex: Female

DRUGS (2)
  1. ZOMETA [Concomitant]
     Active Substance: ZOLEDRONIC ACID
     Indication: PRODUCT USED FOR UNKNOWN INDICATION
     Dosage: 4 MG, UNK
     Route: 065
     Dates: start: 20170224
  2. NIVOLUMAB [Suspect]
     Active Substance: NIVOLUMAB
     Indication: NON-SMALL CELL LUNG CANCER
     Dosage: 3 MG, Q2WK
     Route: 042
     Dates: start: 20171016, end: 20171227

REACTIONS (28)
  - Malignant neoplasm progression [Fatal]
  - Diarrhoea [Recovered/Resolved]
  - Gastroenteritis rotavirus [Recovered/Resolved]
  - Headache [Not Recovered/Not Resolved]
  - Gastrointestinal infection [Recovered/Resolved]
  - General physical health deterioration [Recovered/Resolved]
  - C-reactive protein increased [Recovered/Resolved]
  - Nephropathy toxic [Recovered/Resolved]
  - Rhinorrhoea [Recovered/Resolved]
  - Pulmonary sepsis [Recovered/Resolved]
  - Nausea [Recovered/Resolved]
  - Atypical pneumonia [Recovered/Resolved]
  - Cough [Not Recovered/Not Resolved]
  - Lip discolouration [Unknown]
  - Vertigo [Recovered/Resolved]
  - Infection [Recovered/Resolved]
  - Metastases to muscle [Unknown]
  - Malaise [Recovered/Resolved]
  - Glucocorticoid deficiency [Recovered/Resolved]
  - Pyrexia [Not Recovered/Not Resolved]
  - Mucosal discolouration [Recovered/Resolved]
  - Hyponatraemia [Unknown]
  - Metastases to lymph nodes [Unknown]
  - Sepsis [Recovered/Resolved]
  - Vomiting [Recovered/Resolved]
  - Hypoaesthesia oral [Not Recovered/Not Resolved]
  - Trismus [Not Recovered/Not Resolved]
  - Dry mouth [Recovered/Resolved]

NARRATIVE: CASE EVENT DATE: 20171022
